FAERS Safety Report 21773957 (Version 2)
Quarter: 2023Q1

REPORT INFORMATION
  Report Type: Spontaneous
  Country: CA (occurrence: CA)
  Receive Date: 20221223
  Receipt Date: 20230102
  Transmission Date: 20230417
  Serious: Yes (Other)
  Sender: FDA-Public Use
  Company Number: CA-BAUSCH-BL-2022-027532

PATIENT
  Age: 65 Year
  Sex: Male
  Weight: 119.40 kg

DRUGS (2)
  1. ARAZLO [Suspect]
     Active Substance: TAZAROTENE
     Indication: Acne
     Dosage: TAKING EVERYDAY
     Route: 065
     Dates: start: 2022, end: 2022
  2. ARAZLO [Suspect]
     Active Substance: TAZAROTENE
     Dosage: USING IT SPARINGLY EVERY FEW DAYS
     Route: 065
     Dates: start: 2022, end: 2022

REACTIONS (3)
  - Pneumonia [Unknown]
  - Chest pain [Unknown]
  - Therapy cessation [Unknown]

NARRATIVE: CASE EVENT DATE: 20220101
